FAERS Safety Report 7202569-0 (Version None)
Quarter: 2010Q4

REPORT INFORMATION
  Report Type: 
  Country: None (occurrence: None)
  Receive Date: 20101229
  Receipt Date: 20101221
  Transmission Date: 20110411
  Serious: Yes (Hospitalization)
  Sender: FDA-Public Use
  Company Number: AU-MERCK-1012USA03639

PATIENT
  Sex: Male

DRUGS (7)
  1. ZETIA [Suspect]
     Route: 048
  2. ZOCOR [Concomitant]
     Route: 048
  3. ALPHAPRESS (DOXAZOSIN MESYLATE) [Concomitant]
     Route: 065
  4. PROGOUT [Concomitant]
     Route: 065
  5. AVAPRO [Concomitant]
     Route: 065
  6. LOPID [Concomitant]
     Route: 065
  7. PLAVIX [Concomitant]
     Route: 065

REACTIONS (1)
  - BILIARY TRACT DISORDER [None]
